FAERS Safety Report 12234205 (Version 1)
Quarter: 2016Q2

REPORT INFORMATION
  Report Type: Spontaneous
  Country: US (occurrence: None)
  Receive Date: 20160401
  Receipt Date: 20160401
  Transmission Date: 20160815
  Serious: Yes (Other)
  Sender: FDA-Public Use
  Company Number: None

PATIENT
  Age: 52 Year
  Sex: Female

DRUGS (1)
  1. AVONEX [Suspect]
     Active Substance: INTERFERON BETA-1A
     Indication: MULTIPLE SCLEROSIS
     Dosage: 30MCG Q WEEK IM
     Route: 030
     Dates: start: 201502, end: 201602

REACTIONS (3)
  - Pain [None]
  - Musculoskeletal stiffness [None]
  - Drug ineffective [None]

NARRATIVE: CASE EVENT DATE: 20160222
